FAERS Safety Report 10633744 (Version 2)
Quarter: 2014Q4

REPORT INFORMATION
  Report Type: Spontaneous
  Country: US (occurrence: US)
  Receive Date: 20141205
  Receipt Date: 20141212
  Transmission Date: 20150529
  Serious: Yes (Other)
  Sender: FDA-Public Use
  Company Number: US-ELI_LILLY_AND_COMPANY-US201411010624

PATIENT
  Sex: Female

DRUGS (7)
  1. HUMALOG [Suspect]
     Active Substance: INSULIN LISPRO
     Dosage: 27 U, PRN
     Route: 065
     Dates: start: 201408
  2. INSULIN HUMAN [Suspect]
     Active Substance: INSULIN HUMAN
     Indication: DIABETES MELLITUS
     Dosage: UNK
     Route: 065
     Dates: start: 199808
  3. HUMULIN N [Suspect]
     Active Substance: INSULIN HUMAN
     Indication: DIABETES MELLITUS
     Dosage: UNK
     Route: 065
     Dates: start: 199808
  4. HUMALOG [Suspect]
     Active Substance: INSULIN LISPRO
     Indication: DIABETES MELLITUS
     Dosage: 15 U, EACH MORNING
     Route: 065
     Dates: start: 201408
  5. NOVOLOG [Concomitant]
     Active Substance: INSULIN ASPART
  6. ZOCOR [Concomitant]
     Active Substance: SIMVASTATIN
  7. LEVOTHYROXINE [Concomitant]
     Active Substance: LEVOTHYROXINE

REACTIONS (7)
  - Thyroid cancer [Unknown]
  - Retinal detachment [Unknown]
  - Fall [Unknown]
  - Ankle fracture [Unknown]
  - Visual acuity reduced [Unknown]
  - Visual field defect [Unknown]
  - Blood glucose increased [Unknown]

NARRATIVE: CASE EVENT DATE: 199808
